FAERS Safety Report 4466383-1 (Version None)
Quarter: 2004Q3

REPORT INFORMATION
  Report Type: 
  Country: None (occurrence: None)
  Receive Date: 20040930
  Receipt Date: 20040922
  Transmission Date: 20050211
  Serious: Yes (Hospitalization)
  Sender: FDA-Public Use
  Company Number: 232971K04USA

PATIENT
  Age: 42 Year
  Sex: Female
  Weight: 108.8633 kg

DRUGS (1)
  1. REBIF [Suspect]
     Indication: MULTIPLE SCLEROSIS
     Dosage: 44 MCG, 3 IN 1 WEEKS, SUBCUTANEOUS
     Route: 058
     Dates: start: 20030613

REACTIONS (6)
  - INJECTION SITE BURNING [None]
  - INJECTION SITE HAEMORRHAGE [None]
  - METRORRHAGIA [None]
  - NAUSEA [None]
  - POST PROCEDURAL COMPLICATION [None]
  - UTERINE ENLARGEMENT [None]
